FAERS Safety Report 6247232-8 (Version None)
Quarter: 2009Q2

REPORT INFORMATION
  Report Type: 
  Country: None (occurrence: None)
  Receive Date: 20090626
  Receipt Date: 20090616
  Transmission Date: 20091009
  Serious: Yes (Other)
  Sender: FDA-Public Use
  Company Number: JP-PFIZER INC-2009219430

PATIENT
  Age: 12 Year

DRUGS (2)
  1. DOXYCYCLINE HYCLATE [Suspect]
     Indication: HEADACHE
     Dosage: UNK
     Route: 048
     Dates: start: 20090511, end: 20090511
  2. BRUFEN [Suspect]
     Indication: HEADACHE
     Dosage: UNK
     Route: 048
     Dates: start: 20090511, end: 20090511

REACTIONS (2)
  - COUGH [None]
  - EYELID OEDEMA [None]
